FAERS Safety Report 19396250 (Version 3)
Quarter: 2021Q3

REPORT INFORMATION
  Report Type: Spontaneous
  Country: US (occurrence: US)
  Receive Date: 20210609
  Receipt Date: 20210729
  Transmission Date: 20211014
  Serious: Yes (Hospitalization, Other)
  Sender: FDA-Public Use
  Company Number: US-ALXN-A202106526

PATIENT
  Age: 69 Year
  Sex: Male

DRUGS (1)
  1. SOLIRIS [Suspect]
     Active Substance: ECULIZUMAB
     Indication: MYASTHENIA GRAVIS
     Dosage: 1200 MG , Q2W
     Route: 042

REACTIONS (5)
  - Diverticulitis intestinal perforated [Unknown]
  - Intestinal perforation [Not Recovered/Not Resolved]
  - Abdominal pain [Unknown]
  - Urinary tract infection [Unknown]
  - Respiratory arrest [Unknown]

NARRATIVE: CASE EVENT DATE: 202106
